FAERS Safety Report 9231995 (Version 1)
Quarter: 2013Q2

REPORT INFORMATION
  Report Type: Other
  Country: GB (occurrence: GB)
  Receive Date: 20130415
  Receipt Date: 20130415
  Transmission Date: 20140414
  Serious: Yes (Other)
  Sender: FDA-Public Use
  Company Number: GB-WATSON-2013-06160

PATIENT
  Sex: Female

DRUGS (1)
  1. CIPROFLOXACIN HYDROCHLORIDE (UNKNOWN) [Suspect]
     Indication: PSEUDOMONAS INFECTION
     Dosage: FIRST COURSE IN NOV-12. 500 MG TWICE A DAY IN FOURTH
     Route: 065
     Dates: start: 201211

REACTIONS (2)
  - Diarrhoea [Unknown]
  - Labyrinthitis [Unknown]
